FAERS Safety Report 7133772-6 (Version None)
Quarter: 2010Q4

REPORT INFORMATION
  Report Type: 
  Country: None (occurrence: None)
  Receive Date: 20101203
  Receipt Date: 20101123
  Transmission Date: 20110411
  Serious: No
  Sender: FDA-Public Use
  Company Number: US-BIOGENIDEC-2010BI018799

PATIENT
  Sex: Female

DRUGS (2)
  1. TYSABRI [Suspect]
     Indication: MULTIPLE SCLEROSIS
     Route: 042
     Dates: start: 20080520, end: 20090101
  2. TYSABRI [Suspect]
     Route: 042
     Dates: start: 20090101

REACTIONS (5)
  - DIABETES MELLITUS [None]
  - EYE DISORDER [None]
  - FATIGUE [None]
  - GENITAL HERPES [None]
  - ORAL HERPES [None]
